FAERS Safety Report 21142984 (Version 1)
Quarter: 2022Q3

REPORT INFORMATION
  Report Type: Spontaneous
  Country: US (occurrence: None)
  Receive Date: 20220728
  Receipt Date: 20220728
  Transmission Date: 20221027
  Serious: Yes (Disabling)
  Sender: FDA-Public Use
  Company Number: None

PATIENT
  Age: 55 Year
  Sex: Female

DRUGS (1)
  1. MAGNESIUM CITRATE LEMON [Suspect]
     Active Substance: MAGNESIUM CITRATE
     Indication: Constipation
     Dosage: FREQUENCY : EVERY 6 HOURS;?
     Route: 048
     Dates: start: 20220724, end: 20220726

REACTIONS (9)
  - Dyspnoea [None]
  - Diarrhoea [None]
  - Faeces pale [None]
  - Nausea [None]
  - Vomiting [None]
  - Tinnitus [None]
  - Headache [None]
  - Pyrexia [None]
  - Food allergy [None]

NARRATIVE: CASE EVENT DATE: 20220726
